FAERS Safety Report 10196434 (Version 1)
Quarter: 2014Q2

REPORT INFORMATION
  Report Type: Spontaneous
  Country: US (occurrence: None)
  Receive Date: 20140522
  Receipt Date: 20140522
  Transmission Date: 20141212
  Serious: Yes (Other)
  Sender: FDA-Public Use
  Company Number: SYM-2014-20712

PATIENT
  Sex: Female

DRUGS (1)
  1. ZYCLARA [Suspect]
     Indication: PRECANCEROUS SKIN LESION
     Dosage: TWO WEEKS ON, TWO WEEKS OFF, TWO WEEKS ON, 1 IN 1 D, TOPICAL
     Route: 061
     Dates: start: 20140417

REACTIONS (2)
  - Application site pain [None]
  - Oral mucosal blistering [None]
